FAERS Safety Report 25530012 (Version 1)
Quarter: 2025Q3

REPORT INFORMATION
  Report Type: Spontaneous
  Country: JP (occurrence: JP)
  Receive Date: 20250708
  Receipt Date: 20250708
  Transmission Date: 20251020
  Serious: Yes (Other)
  Sender: DR REDDYS
  Company Number: JP-RDY-JPN/2025/07/009901

PATIENT
  Age: 9 Decade
  Sex: Male

DRUGS (4)
  1. AZACITIDINE [Suspect]
     Active Substance: AZACITIDINE
     Indication: Acute myeloid leukaemia
  2. AZACITIDINE [Suspect]
     Active Substance: AZACITIDINE
  3. VENETOCLAX [Concomitant]
     Active Substance: VENETOCLAX
     Indication: Acute myeloid leukaemia
  4. VENETOCLAX [Concomitant]
     Active Substance: VENETOCLAX

REACTIONS (1)
  - Cardiac dysfunction [Recovering/Resolving]
